FAERS Safety Report 19515602 (Version 4)
Quarter: 2021Q3

REPORT INFORMATION
  Report Type: Spontaneous
  Country: US (occurrence: US)
  Receive Date: 20210709
  Receipt Date: 20210921
  Transmission Date: 20211014
  Serious: Yes (Other)
  Sender: FDA-Public Use
  Company Number: NVSC2021US154342

PATIENT
  Sex: Female

DRUGS (10)
  1. OXYBUTYNIN. [Concomitant]
     Active Substance: OXYBUTYNIN CHLORIDE
     Indication: PRODUCT USED FOR UNKNOWN INDICATION
     Dosage: 5 MG (ER)
     Route: 065
  2. JAKAFI [Suspect]
     Active Substance: RUXOLITINIB
     Dosage: 10 MG, BID
     Route: 065
     Dates: start: 20180330, end: 201901
  3. JAKAFI [Suspect]
     Active Substance: RUXOLITINIB
     Dosage: 20 MG, BID
     Route: 048
     Dates: start: 202005
  4. COLESTYRAMINE [Suspect]
     Active Substance: CHOLESTYRAMINE
     Indication: PRODUCT USED FOR UNKNOWN INDICATION
     Dosage: UNK
     Route: 065
  5. JAKAFI [Suspect]
     Active Substance: RUXOLITINIB
     Indication: POLYCYTHAEMIA VERA
     Dosage: 5 MG, BID
     Route: 065
     Dates: start: 20180205
  6. JAKAFI [Suspect]
     Active Substance: RUXOLITINIB
     Dosage: 10 MG, QD
     Route: 065
     Dates: start: 20200514
  7. CYPROHEPTADINE HCL [Concomitant]
     Active Substance: CYPROHEPTADINE HYDROCHLORIDE
     Indication: PRODUCT USED FOR UNKNOWN INDICATION
     Dosage: 4 MG, BID
     Route: 048
     Dates: start: 20210520
  8. JAKAFI [Suspect]
     Active Substance: RUXOLITINIB
     Dosage: 15 MG, BID
     Route: 065
     Dates: start: 20200629
  9. JAKAFI [Suspect]
     Active Substance: RUXOLITINIB
     Dosage: 20 MG, BID
     Route: 065
     Dates: start: 20200722
  10. JAKAFI [Suspect]
     Active Substance: RUXOLITINIB
     Dosage: 20 MG, BID
     Route: 048
     Dates: start: 20210304

REACTIONS (38)
  - Basal cell carcinoma [Unknown]
  - Red cell distribution width increased [Unknown]
  - Hypoaesthesia [Unknown]
  - Monocyte count increased [Unknown]
  - Alanine aminotransferase increased [Unknown]
  - Haemoglobin decreased [Unknown]
  - Stomatitis [Unknown]
  - Pruritus [Unknown]
  - Suspected product quality issue [Unknown]
  - Haematocrit decreased [Unknown]
  - Herpes zoster [Recovering/Resolving]
  - Leukopenia [Unknown]
  - Oropharyngeal pain [Not Recovered/Not Resolved]
  - Vitamin D deficiency [Unknown]
  - Fatigue [Unknown]
  - Aspartate aminotransferase increased [Unknown]
  - Muscle spasms [Unknown]
  - Drug ineffective [Unknown]
  - Musculoskeletal discomfort [Unknown]
  - Throat irritation [Not Recovered/Not Resolved]
  - Carbon dioxide increased [Unknown]
  - Red blood cell count decreased [Unknown]
  - Neck pain [Not Recovered/Not Resolved]
  - Product physical issue [Unknown]
  - Arthralgia [Unknown]
  - Paraesthesia [Unknown]
  - Mean cell haemoglobin increased [Unknown]
  - Mean platelet volume increased [Unknown]
  - Monocyte percentage increased [Unknown]
  - Rash [Unknown]
  - Contusion [Recovering/Resolving]
  - Malaise [Unknown]
  - Chapped lips [Unknown]
  - Mean cell volume increased [Unknown]
  - Blood urea increased [Unknown]
  - White blood cell count decreased [Unknown]
  - Anaemia [Unknown]
  - Product quality issue [Unknown]
